FAERS Safety Report 8720551 (Version 1)
Quarter: 2012Q4

REPORT INFORMATION
  Report Type: 
  Country: US (occurrence: US)
  Receive Date: 20120907
  Receipt Date: 20120907
  Transmission Date: 20130627
  Serious: Yes (Life-Threatening, Hospitalization)
  Sender: FDA-Public Use
  Company Number: US-ROCHE-1098942

PATIENT
  Age: 53 Year
  Sex: Male

DRUGS (4)
  1. ACTIVASE [Suspect]
     Indication: ACUTE MYOCARDIAL INFARCTION
     Route: 065
  2. LIDOCAIN [Concomitant]
     Dosage: 4 mg per minute
     Route: 065
  3. HEPARIN [Concomitant]
  4. ASPIRIN [Concomitant]

REACTIONS (6)
  - Atrioventricular block [Unknown]
  - Reperfusion arrhythmia [Unknown]
  - Ventricular tachycardia [Unknown]
  - Ventricular extrasystoles [Unknown]
  - Anxiety [Unknown]
  - Electrocardiogram abnormal [Unknown]
